FAERS Safety Report 15462868 (Version 1)
Quarter: 2018Q4

REPORT INFORMATION
  Report Type: Spontaneous
  Country: IT (occurrence: IT)
  Receive Date: 20181004
  Receipt Date: 20181004
  Transmission Date: 20190204
  Serious: Yes (Hospitalization)
  Sender: FDA-Public Use
  Company Number: IT-TEVA-2018-IT-960760

PATIENT
  Sex: Male

DRUGS (3)
  1. OLANZAPINE TEVA 10 MG FILM-COATED TABLETS [Suspect]
     Active Substance: OLANZAPINE
     Indication: MANIA
     Route: 065
     Dates: start: 20180818, end: 20180822
  2. ABILIFY 7.5 MG/ML SOLUTION FOR INJECTION [Concomitant]
     Dates: start: 20180818, end: 20180821
  3. DEPAKIN 500 MG GRANULATO A RILASCIO MODIFICATO [Concomitant]
     Dates: start: 20180818, end: 20180822

REACTIONS (1)
  - Therapy non-responder [Unknown]

NARRATIVE: CASE EVENT DATE: 20180822
